FAERS Safety Report 6304616-7 (Version None)
Quarter: 2009Q3

REPORT INFORMATION
  Report Type: 
  Country: None (occurrence: None)
  Receive Date: 20090811
  Receipt Date: 20090804
  Transmission Date: 20100115
  Serious: No
  Sender: FDA-Public Use
  Company Number: US-JNJFOC-20081105616

PATIENT
  Sex: Female
  Weight: 56.7 kg

DRUGS (5)
  1. DURAGESIC-100 [Suspect]
     Route: 062
  2. DURAGESIC-100 [Suspect]
     Indication: PAIN
     Route: 062
  3. HYDROCODONE [Concomitant]
     Indication: PAIN
     Dosage: AS NEEDED
     Route: 048
  4. AMITRIPXYLINE [Concomitant]
     Indication: SLEEP DISORDER
     Route: 048
  5. LORAZEPAM [Concomitant]
     Indication: NEUROPATHY PERIPHERAL
     Route: 048

REACTIONS (2)
  - RASH [None]
  - WRONG TECHNIQUE IN DRUG USAGE PROCESS [None]
